FAERS Safety Report 8790136 (Version 6)
Quarter: 2014Q2

REPORT INFORMATION
  Report Type: Spontaneous
  Country: US (occurrence: US)
  Receive Date: 20120917
  Receipt Date: 20140527
  Transmission Date: 20141212
  Serious: Yes (Other)
  Sender: FDA-Public Use
  Company Number: US-009507513-1208USA007220

PATIENT
  Sex: Female
  Weight: 88.89 kg

DRUGS (12)
  1. PEG-INTRON [Suspect]
     Indication: HEPATITIS C
     Dosage: UNK, QW
     Route: 058
     Dates: start: 20120622, end: 201301
  2. REBETOL [Suspect]
     Indication: HEPATITIS C
     Dosage: 6 DF PER DAY
     Route: 048
     Dates: start: 20120622
  3. REBETOL [Suspect]
     Dosage: 3 DF PER DAY
     Route: 048
     Dates: end: 201301
  4. TELAPREVIR [Suspect]
     Indication: HEPATITIS C
     Dosage: UNK
     Dates: start: 20120622, end: 20120922
  5. INCIVEK [Suspect]
     Dosage: DAILY
  6. AMLODIPINE [Concomitant]
     Indication: HYPERTENSION
     Dosage: ONE DAILY
     Route: 048
  7. METFORMIN [Concomitant]
     Dosage: ONE TABLET DAILY
  8. ASPIRIN [Concomitant]
     Dosage: 1 DAILY
  9. OMEPRAZOLE [Concomitant]
     Indication: GASTROOESOPHAGEAL REFLUX DISEASE
     Dosage: 1 DAILY
     Route: 048
  10. PROVENTIL [Concomitant]
     Indication: CHRONIC OBSTRUCTIVE PULMONARY DISEASE
     Dosage: 1-2 PUFFS, PRN
     Route: 045
  11. BUSPIRONE HYDROCHLORIDE [Concomitant]
     Indication: ANXIETY
     Route: 048
  12. TRAMADOL HYDROCHLORIDE [Concomitant]
     Indication: PAIN
     Route: 048

REACTIONS (25)
  - Loss of consciousness [Recovered/Resolved]
  - Pneumonia [Recovered/Resolved]
  - Hypothyroidism [Recovered/Resolved]
  - Ear pain [Recovered/Resolved]
  - Amnesia [Recovered/Resolved]
  - Crying [Recovered/Resolved]
  - Weight increased [Recovered/Resolved]
  - Injection site pain [Recovered/Resolved]
  - Memory impairment [Recovered/Resolved]
  - Visual impairment [Recovered/Resolved]
  - Dizziness [Recovered/Resolved]
  - Asthenia [Recovered/Resolved]
  - Depression [Recovered/Resolved]
  - Fatigue [Recovered/Resolved]
  - Dyspnoea [Recovered/Resolved]
  - Anaemia [Recovered/Resolved]
  - Bronchitis [Recovered/Resolved]
  - Depression [Recovered/Resolved]
  - Irritability [Recovered/Resolved]
  - Asthenia [Recovered/Resolved]
  - Hypothyroidism [Recovered/Resolved]
  - Drug ineffective [Recovered/Resolved]
  - Bedridden [Recovered/Resolved]
  - Therapeutic response decreased [Recovered/Resolved]
  - Anaemia [Recovered/Resolved]
